FAERS Safety Report 9337897 (Version 1)
Quarter: 2013Q2

REPORT INFORMATION
  Report Type: Spontaneous
  Country: US (occurrence: US)
  Receive Date: 20130608
  Receipt Date: 20130608
  Transmission Date: 20140414
  Serious: No
  Sender: FDA-Public Use
  Company Number: US-B.I. PHARMACEUTICALS,INC./RIDGEFIELD-2013-BI-15839BP

PATIENT
  Age: 41 Year
  Sex: Female
  Weight: 59.87 kg

DRUGS (3)
  1. ZANTAC (RANITIDINE HYDROCHLORIDE) [Suspect]
     Indication: DYSPEPSIA
     Route: 048
  2. IMITREX [Concomitant]
     Indication: MIGRAINE
     Dosage: STRENGTH: 25-50MG
     Route: 048
     Dates: start: 1988
  3. SUDAFED [Concomitant]
     Indication: SNEEZING
     Route: 048
     Dates: start: 1996

REACTIONS (2)
  - Dyspepsia [Not Recovered/Not Resolved]
  - Drug ineffective [Unknown]
